FAERS Safety Report 13754316 (Version 1)
Quarter: 2017Q3

REPORT INFORMATION
  Report Type: Spontaneous
  Country: US (occurrence: US)
  Receive Date: 20170714
  Receipt Date: 20170714
  Transmission Date: 20171127
  Serious: No
  Sender: FDA-Public Use
  Company Number: None

PATIENT
  Age: 81 Year
  Sex: Female
  Weight: 70.31 kg

DRUGS (13)
  1. COD LIVER OIL [Concomitant]
     Active Substance: COD LIVER OIL
  2. MULTI VITAMIN [Concomitant]
     Active Substance: VITAMINS
  3. BRILINTA [Suspect]
     Active Substance: TICAGRELOR
  4. ASPIRIN. [Concomitant]
     Active Substance: ASPIRIN
  5. FOLIC ACID. [Concomitant]
     Active Substance: FOLIC ACID
  6. HYOSCYAMINE. [Concomitant]
     Active Substance: HYOSCYAMINE
  7. CALCIUM [Concomitant]
     Active Substance: CALCIUM
  8. CLOPIDOGREL BISULFATE [GENERIC FOR PLAVIX ] [Suspect]
     Active Substance: CLOPIDOGREL BISULFATE
     Indication: THROMBOSIS PROPHYLAXIS
     Route: 048
     Dates: start: 20160615, end: 20160718
  9. EFFIENT [Suspect]
     Active Substance: PRASUGREL HYDROCHLORIDE
  10. VITAMIN C [Concomitant]
     Active Substance: ASCORBIC ACID
  11. ACIPHEX [Concomitant]
     Active Substance: RABEPRAZOLE SODIUM
  12. LEVOTHYROXINE. [Concomitant]
     Active Substance: LEVOTHYROXINE
  13. COQ10 [Concomitant]
     Active Substance: UBIDECARENONE

REACTIONS (5)
  - Cough [None]
  - Abdominal pain upper [None]
  - Confusional state [None]
  - Mental impairment [None]
  - Dizziness [None]

NARRATIVE: CASE EVENT DATE: 20160615
